FAERS Safety Report 13997082 (Version 2)
Quarter: 2017Q3

REPORT INFORMATION
  Report Type: Report from Study
  Country: US (occurrence: US)
  Receive Date: 20170921
  Receipt Date: 20170927
  Transmission Date: 20171128
  Serious: Yes (Hospitalization)
  Sender: FDA-Public Use
  Company Number: US-PFIZER INC-2017403746

PATIENT
  Age: 18 Year
  Sex: Female
  Weight: 84.1 kg

DRUGS (16)
  1. MENINGOCOCCAL POLYSACCHARIDE VACCINE, GROUPS A, C, Y, W135 COMBINED NOS [Suspect]
     Active Substance: MENINGOCOCCAL POLYSACCHARIDE VACCINE, GROUPS A, C, Y,W135 COMBINED
     Indication: IMMUNISATION
     Dosage: SINGLE DOSE
     Route: 030
     Dates: start: 20170327, end: 20170327
  2. BLINDED PF-06886992 [Suspect]
     Active Substance: INVESTIGATIONAL PRODUCT
     Indication: IMMUNISATION
     Dosage: SINGLE DOSE
     Route: 030
     Dates: start: 20170327, end: 20170327
  3. LEXAPRO [Suspect]
     Active Substance: ESCITALOPRAM OXALATE
     Dosage: 10 MG, DAILY
     Route: 048
     Dates: start: 20170912, end: 20170915
  4. TRUMENBA [Suspect]
     Active Substance: NEISSERIA MENINGITIDIS SEROGROUP B RECOMBINANT LP2086 A05 PROTEIN VARIANT ANTIGEN\NEISSERIA MENINGITIDIS SEROGROUP B RECOMBINANT LP2086 B01 PROTEIN VARIANT ANTIGEN
     Indication: IMMUNISATION
     Dosage: SINGLE DOSE
     Route: 030
     Dates: start: 20170327, end: 20170327
  5. GIANVI [Concomitant]
     Active Substance: DROSPIRENONE\ETHINYL ESTRADIOL
     Indication: MENSTRUATION IRREGULAR
     Dosage: 1 TAB, DAILY
     Route: 048
     Dates: start: 20170822
  6. BUSPIRONE [Concomitant]
     Active Substance: BUSPIRONE HYDROCHLORIDE
     Indication: NEGATIVISM
     Dosage: 10 MG, 2X/DAY
     Route: 048
     Dates: start: 20160929, end: 20170915
  7. TRUMENBA [Suspect]
     Active Substance: NEISSERIA MENINGITIDIS SEROGROUP B RECOMBINANT LP2086 A05 PROTEIN VARIANT ANTIGEN\NEISSERIA MENINGITIDIS SEROGROUP B RECOMBINANT LP2086 B01 PROTEIN VARIANT ANTIGEN
     Indication: IMMUNISATION
     Dosage: SINGLE DOSE
     Route: 030
     Dates: start: 20170327, end: 20170327
  8. CELEXA [Suspect]
     Active Substance: CITALOPRAM HYDROBROMIDE
     Dosage: 20 MG, 1X/DAY
     Route: 048
     Dates: start: 20170913, end: 20170915
  9. AMBIEN [Concomitant]
     Active Substance: ZOLPIDEM TARTRATE
     Indication: INSOMNIA
     Dosage: 10 MG, 1X/DAY
     Route: 048
     Dates: start: 20170508
  10. MENINGOCOCCAL POLYSACCHARIDE VACCINE, GROUPS A, C, Y, W135 COMBINED NOS [Suspect]
     Active Substance: MENINGOCOCCAL POLYSACCHARIDE VACCINE, GROUPS A, C, Y,W135 COMBINED
     Indication: IMMUNISATION
     Dosage: SINGLE DOSE
     Route: 030
     Dates: start: 20170327, end: 20170327
  11. GEODON [Suspect]
     Active Substance: ZIPRASIDONE HYDROCHLORIDE\ZIPRASIDONE MESYLATE
     Indication: NEGATIVISM
     Dosage: 20 MG, DAILY
     Route: 048
     Dates: start: 20170912, end: 20170915
  12. LEXAPRO [Suspect]
     Active Substance: ESCITALOPRAM OXALATE
     Indication: NEGATIVISM
     Dosage: 10 MG, DAILY
     Route: 048
     Dates: start: 20170829, end: 20170905
  13. LEXAPRO [Suspect]
     Active Substance: ESCITALOPRAM OXALATE
     Dosage: 20 MG, DAILY
     Route: 048
     Dates: start: 20170905, end: 20170912
  14. BLINDED PLACEBO [Suspect]
     Active Substance: INVESTIGATIONAL PRODUCT
     Indication: IMMUNISATION
     Dosage: SINGLE DOSE
     Route: 030
     Dates: start: 20170327, end: 20170327
  15. CELEXA [Suspect]
     Active Substance: CITALOPRAM HYDROBROMIDE
     Indication: NEGATIVISM
     Dosage: 20 MG, DAILY
     Route: 048
     Dates: start: 20170703, end: 20170829
  16. TRILEPTAL [Concomitant]
     Active Substance: OXCARBAZEPINE
     Indication: NEGATIVISM
     Dosage: 150 MG, 2X/DAY
     Route: 048
     Dates: start: 20160929

REACTIONS (7)
  - Diplopia [None]
  - Pain in extremity [None]
  - Vision blurred [None]
  - Aspartate aminotransferase increased [None]
  - Overdose [Recovered/Resolved]
  - Abdominal pain [None]
  - Suicide attempt [Recovered/Resolved]

NARRATIVE: CASE EVENT DATE: 20170915
